FAERS Safety Report 21573828 (Version 1)
Quarter: 2022Q4

REPORT INFORMATION
  Report Type: Spontaneous
  Country: US (occurrence: None)
  Receive Date: 20221108
  Receipt Date: 20221108
  Transmission Date: 20230113
  Serious: Yes (Other)
  Sender: FDA-Public Use
  Company Number: None

PATIENT
  Sex: Male

DRUGS (2)
  1. BOTOX [Suspect]
     Active Substance: ONABOTULINUMTOXINA
     Indication: Migraine
     Dosage: 100 UNIT INJECTION??INJECT UP TO 200 UNITS INTRAMUSCULARLY INTO FOREHEAD, NECK, AND TRAPEZIUS EVERY
     Route: 030
     Dates: start: 20220726
  2. BOTOX [Suspect]
     Active Substance: ONABOTULINUMTOXINA
     Dosage: OTHER QUANTITY : UP TO 200 UNITS;?FREQUENCY : AS DIRECTED;?
     Route: 030

REACTIONS (1)
  - Pulmonary embolism [None]
